FAERS Safety Report 6715699-4 (Version None)
Quarter: 2010Q2

REPORT INFORMATION
  Report Type: 
  Country: None (occurrence: None)
  Receive Date: 20100506
  Receipt Date: 20100506
  Transmission Date: 20101027
  Serious: Yes (Other)
  Sender: FDA-Public Use
  Company Number: None

PATIENT
  Age: 66 Year
  Sex: Female
  Weight: 65.7716 kg

DRUGS (1)
  1. CLARITIN [Suspect]
     Indication: ALLERGY TO PLANTS
     Dosage: 240 MG PSEUDOEPHEDRINE 1 PER DAY PO 10 MFGLORATADINE 1 PER DAY PO
     Route: 048
     Dates: start: 20100503, end: 20100503

REACTIONS (10)
  - ASTHENIA [None]
  - DRUG EFFECT PROLONGED [None]
  - DRUG TOXICITY [None]
  - FEELING ABNORMAL [None]
  - FEELING JITTERY [None]
  - IMPAIRED DRIVING ABILITY [None]
  - INSOMNIA [None]
  - IRRITABILITY [None]
  - NAUSEA [None]
  - PARAESTHESIA [None]
